FAERS Safety Report 7817879-3 (Version None)
Quarter: 2011Q4

REPORT INFORMATION
  Report Type: 
  Country: None (occurrence: None)
  Receive Date: 20111017
  Receipt Date: 20111005
  Transmission Date: 20120403
  Serious: Yes (Other)
  Sender: FDA-Public Use
  Company Number: KR-JNJFOC-20111003596

PATIENT
  Age: 80 Year
  Sex: Male

DRUGS (8)
  1. HALOPERIDOL [Suspect]
     Route: 065
  2. INSULIN [Concomitant]
     Indication: DIABETES MELLITUS
     Route: 058
  3. HALOPERIDOL [Suspect]
     Indication: CHOREA
     Dosage: DOSAGE FORM 1.5 MG PER DAY TO 4.5 MG PER DAY
     Route: 065
  4. HALOPERIDOL [Suspect]
     Indication: BALLISMUS
     Dosage: DOSAGE FORM 1.5 MG PER DAY TO 4.5 MG PER DAY
     Route: 065
  5. HALOPERIDOL [Suspect]
     Route: 065
  6. ASPIRIN [Concomitant]
     Indication: ANGINA PECTORIS
     Route: 065
  7. HALOPERIDOL [Suspect]
     Route: 065
  8. HALOPERIDOL [Suspect]
     Route: 065

REACTIONS (1)
  - CHOREA [None]
